FAERS Safety Report 6887703-4 (Version None)
Quarter: 2010Q3

REPORT INFORMATION
  Report Type: 
  Country: None (occurrence: None)
  Receive Date: 20100730
  Receipt Date: 20100726
  Transmission Date: 20110219
  Serious: Yes (Life-Threatening, Hospitalization)
  Sender: FDA-Public Use
  Company Number: US-ROCHE-697698

PATIENT
  Sex: Female
  Weight: 66.2 kg

DRUGS (15)
  1. VALGANCICLOVIR [Suspect]
     Dosage: DOSE:450 FREQUENCY:QD
     Route: 048
     Dates: start: 20100122
  2. MYCOPHENOLATE MOFETIL [Suspect]
     Route: 065
  3. PROGRAF [Concomitant]
     Dosage: DOSE: 0.5
     Route: 048
  4. ACTOS [Concomitant]
     Dosage: DOSE: 15 QD
     Route: 048
  5. PHOS-NAK [Concomitant]
     Route: 048
  6. PROTONIX [Concomitant]
     Dosage: DOSE:40 QD
     Route: 048
  7. OXYCODONE [Concomitant]
     Dosage: DOSE: 5 TO 10 MG Q6 PRN
     Route: 048
  8. METOPROLOL TARTRATE [Concomitant]
     Route: 048
  9. LEVOTHYROXINE SODIUM [Concomitant]
     Route: 048
  10. LASIX [Concomitant]
  11. FLUCONAZOLE [Concomitant]
  12. EPOGEN [Concomitant]
  13. ASPIRIN [Concomitant]
     Dosage: DOSE: 325 QD
     Route: 048
  14. ALLOPURINOL [Concomitant]
     Route: 048
  15. LANTUS [Concomitant]

REACTIONS (6)
  - BLOOD POTASSIUM INCREASED [None]
  - DEHYDRATION [None]
  - DIARRHOEA [None]
  - ELECTROLYTE IMBALANCE [None]
  - MALAISE [None]
  - UROSEPSIS [None]
